FAERS Safety Report 5518231-6 (Version None)
Quarter: 2007Q4

REPORT INFORMATION
  Report Type: 
  Country: None (occurrence: None)
  Receive Date: 20071115
  Receipt Date: 20071112
  Transmission Date: 20080405
  Serious: Yes (Hospitalization)
  Sender: FDA-Public Use
  Company Number: US-BRISTOL-MYERS SQUIBB COMPANY-13980750

PATIENT
  Age: 66 Year
  Sex: Male
  Weight: 79 kg

DRUGS (19)
  1. BLINDED: CISPLATIN [Suspect]
     Indication: SQUAMOUS CELL CARCINOMA
     Route: 042
     Dates: start: 20071011
  2. BLINDED: PEMETREXED DISODIUM [Suspect]
     Indication: SQUAMOUS CELL CARCINOMA
     Route: 042
     Dates: start: 20071011
  3. FOLIC ACID [Concomitant]
     Dates: start: 20071004
  4. VITAMIN B-12 [Concomitant]
     Dates: start: 20071004
  5. DEXAMETHASONE [Concomitant]
     Dates: start: 20071010, end: 20071012
  6. VERAPAMIL HCL [Concomitant]
  7. PRILOSEC [Concomitant]
  8. AMBIEN [Concomitant]
  9. TRAZODONE HCL [Concomitant]
  10. ASPIRIN [Concomitant]
  11. MORPHINE SULFATE [Concomitant]
     Dates: start: 20071024
  12. CLINDAMYCIN [Concomitant]
     Dates: start: 20071024
  13. HEPARIN [Concomitant]
     Dates: start: 20071024
  14. METOPROLOL TARTRATE [Concomitant]
     Dates: start: 20071024
  15. MORPHINE [Concomitant]
     Dates: start: 20071024
  16. ONDANSETRON [Concomitant]
     Dates: start: 20071024
  17. POTASSIUM CHLORIDE [Concomitant]
     Dates: start: 20071024
  18. CEFAZOLIN [Concomitant]
     Dates: start: 20071024
  19. LASIX [Concomitant]
     Dates: start: 20071024

REACTIONS (1)
  - LARYNGEAL OEDEMA [None]
